FAERS Safety Report 8541225 (Version 2)
Quarter: 2012Q4

REPORT INFORMATION
  Report Type: 
  Country: US (occurrence: US)
  Receive Date: 20120502
  Receipt Date: 20120831
  Transmission Date: 20130627
  Serious: Yes (Hospitalization)
  Sender: FDA-Public Use
  Company Number: US-BAYER-2012-042068

PATIENT
  Age: 27 Year
  Sex: Female
  Weight: 62.13 kg

DRUGS (7)
  1. YAZ [Suspect]
     Dosage: UNK
     Dates: start: 20080811, end: 200907
  2. FEXOFENADINE [Concomitant]
     Dosage: 180 mg, daily
     Route: 048
     Dates: start: 20090509
  3. ALLEGRA [Concomitant]
     Dosage: UNK UNK, PRN
     Route: 048
     Dates: start: 20090625
  4. FLUTICASONE PROPIONATE [Concomitant]
     Dosage: 50 ?g, 2 sprays in each nostril once daily
     Route: 045
     Dates: start: 20090509
  5. PRENATAL VITAMINS [Concomitant]
     Dosage: UNK
     Route: 048
     Dates: start: 20090625
  6. FISH OIL [Concomitant]
     Dosage: 1200 mg, UNK
     Route: 048
     Dates: start: 20090625
  7. ALBUTEROL [Concomitant]
     Dosage: UNK
     Dates: start: 20090625

REACTIONS (8)
  - Cholecystitis acute [None]
  - Cholelithiasis [None]
  - Gallbladder disorder [None]
  - Injury [None]
  - Pain [None]
  - Abdominal pain upper [None]
  - Nausea [None]
  - Vomiting [None]
